FAERS Safety Report 13825517 (Version 1)
Quarter: 2017Q3

REPORT INFORMATION
  Report Type: Spontaneous
  Country: US (occurrence: US)
  Receive Date: 20170802
  Receipt Date: 20170802
  Transmission Date: 20171127
  Serious: No
  Sender: FDA-Public Use
  Company Number: US-ASTRAZENECA-2017SE78340

PATIENT
  Sex: Female

DRUGS (1)
  1. FASLODEX [Suspect]
     Active Substance: FULVESTRANT
     Dosage: FIRST THREE DOSES EVERY 2 WEEKS
     Route: 030

REACTIONS (3)
  - Skin burning sensation [Unknown]
  - Hepatic pain [Unknown]
  - Hepatic enzyme increased [Unknown]
